FAERS Safety Report 5659339-4 (Version None)
Quarter: 2008Q1

REPORT INFORMATION
  Report Type: 
  Country: None (occurrence: None)
  Receive Date: 20080311
  Receipt Date: 20080226
  Transmission Date: 20080703
  Serious: Yes (Other)
  Sender: FDA-Public Use
  Company Number: US-JNJFOC-20080206403

PATIENT
  Age: 27 Year
  Sex: Female
  Weight: 71.22 kg

DRUGS (1)
  1. MYLANTA MAXIMUM STRENGTH ORIGINAL [Suspect]
     Indication: GASTRITIS
     Dosage: 1 TEASPOON
     Route: 048

REACTIONS (4)
  - ABDOMINAL DISTENSION [None]
  - ABDOMINAL PAIN UPPER [None]
  - DIARRHOEA [None]
  - GASTRIC ULCER [None]
